FAERS Safety Report 22123851 (Version 1)
Quarter: 2023Q1

REPORT INFORMATION
  Report Type: Spontaneous
  Country: US (occurrence: US)
  Receive Date: 20230322
  Receipt Date: 20230322
  Transmission Date: 20230418
  Serious: No
  Sender: FDA-Public Use
  Company Number: US-JNJFOC-20230330215

PATIENT
  Age: 25 Year
  Sex: Male

DRUGS (2)
  1. TYLENOL [Suspect]
     Active Substance: ACETAMINOPHEN
     Indication: Migraine
     Route: 048
  2. TAVNEOS [Concomitant]
     Active Substance: AVACOPAN
     Indication: Vasculitis
     Route: 065
     Dates: start: 202212

REACTIONS (5)
  - Product use in unapproved indication [Unknown]
  - Vomiting [Unknown]
  - Nausea [Unknown]
  - Photosensitivity reaction [Unknown]
  - Headache [Unknown]
